FAERS Safety Report 23859042 (Version 1)
Quarter: 2024Q2

REPORT INFORMATION
  Report Type: Spontaneous
  Country: US (occurrence: None)
  Receive Date: 20240509
  Receipt Date: 20240509
  Transmission Date: 20240716
  Serious: Yes (Life-Threatening)
  Sender: FDA-Public Use
  Company Number: None

PATIENT
  Age: 44 Year
  Sex: Female
  Weight: 95.25 kg

DRUGS (2)
  1. .DELTA.9-TETRAHYDROCANNABINOL\HERBALS [Suspect]
     Active Substance: .DELTA.9-TETRAHYDROCANNABINOL\HERBALS
     Indication: Pain
     Dates: start: 20240415, end: 20240415
  2. DELAT-9 THC + CBD RELAX GUMMIES 25:1 BLEND [Concomitant]

REACTIONS (9)
  - Obstructive airways disorder [None]
  - Dyspnoea [None]
  - Swelling face [None]
  - Pharyngeal swelling [None]
  - Hypertension [None]
  - Heart rate increased [None]
  - Airway compression [None]
  - Pharyngeal disorder [None]
  - Substance use [None]

NARRATIVE: CASE EVENT DATE: 20240415
